FAERS Safety Report 20506805 (Version 1)
Quarter: 2022Q1

REPORT INFORMATION
  Report Type: Report from Study
  Country: US (occurrence: None)
  Receive Date: 20220223
  Receipt Date: 20220223
  Transmission Date: 20220424
  Serious: Yes (Hospitalization)
  Sender: FDA-Public Use
  Company Number: US-Eisai Medical Research-EC-2022-108944

PATIENT
  Age: 62 Year
  Sex: Female

DRUGS (5)
  1. LENVIMA [Suspect]
     Active Substance: LENVATINIB
     Indication: Renal cell carcinoma
     Route: 048
     Dates: start: 20211105, end: 20220109
  2. LENVIMA [Suspect]
     Active Substance: LENVATINIB
     Indication: Renal cancer
     Route: 048
     Dates: start: 20220121
  3. LENVIMA [Suspect]
     Active Substance: LENVATINIB
     Indication: Malignant lymphoid neoplasm
  4. CABOMETYX [Concomitant]
     Active Substance: CABOZANTINIB S-MALATE
  5. EVEROLIMUS [Concomitant]
     Active Substance: EVEROLIMUS
     Indication: Renal cancer

REACTIONS (2)
  - Hepatic infection [Recovered/Resolved]
  - Constipation [Recovered/Resolved]

NARRATIVE: CASE EVENT DATE: 20211101
